FAERS Safety Report 9308760 (Version 1)
Quarter: 2013Q2

REPORT INFORMATION
  Report Type: Spontaneous
  Country: US (occurrence: US)
  Receive Date: 20130524
  Receipt Date: 20130524
  Transmission Date: 20140414
  Serious: No
  Sender: FDA-Public Use
  Company Number: US-NOVEN-13US006124

PATIENT
  Age: 53 Year
  Sex: Female

DRUGS (1)
  1. MINIVELLE [Suspect]
     Indication: MENOPAUSAL SYMPTOMS
     Dosage: 0.1 MG, TWICE A WEEK
     Route: 062
     Dates: start: 20130124, end: 20130128

REACTIONS (1)
  - Application site rash [Unknown]
